FAERS Safety Report 18212625 (Version 1)
Quarter: 2020Q3

REPORT INFORMATION
  Report Type: Report from Study
  Country: US (occurrence: US)
  Receive Date: 20200831
  Receipt Date: 20200831
  Transmission Date: 20201103
  Serious: Yes (Hospitalization)
  Sender: FDA-Public Use
  Company Number: US-EISAI MEDICAL RESEARCH-EC-2020-071041

PATIENT
  Age: 72 Year
  Sex: Male

DRUGS (21)
  1. AMLODIPINE [Concomitant]
     Active Substance: AMLODIPINE BESYLATE
  2. TUMS [Concomitant]
     Active Substance: CALCIUM CARBONATE
  3. SARNA [Concomitant]
  4. VITAMIN E [Concomitant]
     Active Substance: .ALPHA.-TOCOPHEROL
  5. DULOXETINE. [Concomitant]
     Active Substance: DULOXETINE
  6. VITAMIN C [Concomitant]
     Active Substance: ASCORBIC ACID
  7. IRBESARTAN. [Concomitant]
     Active Substance: IRBESARTAN
  8. OMEPRAZOLE. [Concomitant]
     Active Substance: OMEPRAZOLE
  9. AFINITOR [Concomitant]
     Active Substance: EVEROLIMUS
  10. FISH OIL [Concomitant]
     Active Substance: FISH OIL
  11. MULTIVITAMINS [Concomitant]
     Active Substance: VITAMINS
  12. DEXAMETHASONE. [Concomitant]
     Active Substance: DEXAMETHASONE
  13. DIPHENOXYLATE?ATROPINE [Concomitant]
     Active Substance: ATROPINE\DIPHENOXYLATE
  14. ONDANSETRON [Concomitant]
     Active Substance: ONDANSETRON
  15. LENVIMA [Suspect]
     Active Substance: LENVATINIB
     Indication: METASTASES TO LUNG
  16. ACETAMINOPHEN?CODEINE [Concomitant]
     Active Substance: ACETAMINOPHEN\CODEINE PHOSPHATE
  17. VITAMIN D3 [Concomitant]
     Active Substance: CHOLECALCIFEROL
  18. MORPHINE [Concomitant]
     Active Substance: MORPHINE
  19. LENVIMA [Suspect]
     Active Substance: LENVATINIB
     Indication: RENAL CANCER
     Route: 048
     Dates: start: 202001, end: 202008
  20. TYLENOL [Concomitant]
     Active Substance: ACETAMINOPHEN
  21. DOXYCYCLINE. [Concomitant]
     Active Substance: DOXYCYCLINE

REACTIONS (10)
  - Weight decreased [Unknown]
  - Vomiting [Unknown]
  - Rash [Unknown]
  - Inadequate diet [Unknown]
  - Urticaria [Unknown]
  - Eye disorder [Unknown]
  - Dehydration [Unknown]
  - Muscle spasms [Unknown]
  - Pain [Unknown]
  - Diarrhoea [Unknown]

NARRATIVE: CASE EVENT DATE: 2020
